FAERS Safety Report 7135229-5 (Version None)
Quarter: 2010Q4

REPORT INFORMATION
  Report Type: 
  Country: None (occurrence: None)
  Receive Date: 20101203
  Receipt Date: 20101125
  Transmission Date: 20110411
  Serious: Yes (Other)
  Sender: FDA-Public Use
  Company Number: A0653778A

PATIENT
  Age: 32 Year
  Sex: Male

DRUGS (3)
  1. PAXIL [Suspect]
     Indication: ANXIETY
     Dosage: 60MG PER DAY
     Route: 065
  2. LUVOX [Concomitant]
     Indication: PANIC REACTION
     Route: 065
  3. UNSPECIFIED MEDICATION [Concomitant]
     Route: 065

REACTIONS (33)
  - ABDOMINAL PAIN UPPER [None]
  - ADVERSE DRUG REACTION [None]
  - AGGRESSION [None]
  - AGITATION [None]
  - AMNESIA [None]
  - ANXIETY [None]
  - BONE PAIN [None]
  - BRAIN INJURY [None]
  - BURNING SENSATION [None]
  - CONFUSIONAL STATE [None]
  - DISABILITY [None]
  - DISORIENTATION [None]
  - DIZZINESS [None]
  - ERYTHEMA [None]
  - FEELING ABNORMAL [None]
  - HEAD DISCOMFORT [None]
  - HEADACHE [None]
  - INSOMNIA [None]
  - MALAISE [None]
  - MOVEMENT DISORDER [None]
  - MYALGIA [None]
  - NERVE INJURY [None]
  - NEUROPATHY PERIPHERAL [None]
  - PAIN [None]
  - PAIN IN EXTREMITY [None]
  - PARAESTHESIA [None]
  - QUALITY OF LIFE DECREASED [None]
  - SOMNOLENCE [None]
  - TENSION [None]
  - TENSION HEADACHE [None]
  - TINNITUS [None]
  - TREMOR [None]
  - WITHDRAWAL SYNDROME [None]
